FAERS Safety Report 5745738-9 (Version None)
Quarter: 2008Q2

REPORT INFORMATION
  Report Type: 
  Country: None (occurrence: None)
  Receive Date: 20080521
  Receipt Date: 20080509
  Transmission Date: 20081010
  Serious: Yes (Hospitalization)
  Sender: FDA-Public Use
  Company Number: FR-PFIZER INC-2008040920

PATIENT
  Sex: Male

DRUGS (7)
  1. TRIFLUCAN [Suspect]
     Route: 048
  2. MEDROL [Suspect]
     Route: 048
  3. VINCRISTINE [Suspect]
     Route: 042
  4. DOXORUBICIN HCL [Suspect]
     Route: 042
  5. CYCLOPHOSPHAMIDE [Suspect]
     Route: 042
  6. MABTHERA [Suspect]
     Route: 042
  7. DRUG, UNSPECIFIED [Concomitant]

REACTIONS (3)
  - ANAEMIA [None]
  - LEUKOPENIA [None]
  - THROMBOCYTOPENIA [None]
